FAERS Safety Report 8381152-8 (Version None)
Quarter: 2012Q2

REPORT INFORMATION
  Report Type: 
  Country: None (occurrence: None)
  Receive Date: 20120523
  Receipt Date: 20120503
  Transmission Date: 20120825
  Serious: No
  Sender: FDA-Public Use
  Company Number: US-B.I. PHARMACEUTICALS,INC./RIDGEFIELD-2012-BP-05473BP

PATIENT
  Sex: Female

DRUGS (7)
  1. PRADAXA [Suspect]
     Indication: ATRIAL FIBRILLATION
     Dosage: 300 MG
     Route: 048
     Dates: start: 20120314, end: 20120327
  2. LOPRESSOR [Concomitant]
     Indication: HYPERTENSION
     Dosage: 50 MG
     Route: 048
     Dates: start: 20080101
  3. ASPIRIN [Concomitant]
     Indication: ATRIAL FIBRILLATION
     Dosage: 81 MG
     Route: 048
     Dates: start: 20120314
  4. METOPROLOL [Concomitant]
     Dosage: 50 MG
  5. DIGOXIN [Concomitant]
     Dosage: 0.125 MG
  6. ASPIRIN [Concomitant]
     Dosage: 325 MG
  7. AMIODARONE HCL [Concomitant]
     Indication: ATRIAL FIBRILLATION
     Dosage: 400 MG
     Route: 048
     Dates: start: 20120314

REACTIONS (4)
  - DIZZINESS POSTURAL [None]
  - ATRIAL FIBRILLATION [None]
  - VITREOUS FLOATERS [None]
  - BLOOD URINE PRESENT [None]
